FAERS Safety Report 5023711-6 (Version None)
Quarter: 2006Q2

REPORT INFORMATION
  Report Type: 
  Country: None (occurrence: None)
  Receive Date: 20060606
  Receipt Date: 20060524
  Transmission Date: 20061013
  Serious: No
  Sender: FDA-Public Use
  Company Number: FR-2006-009208

PATIENT
  Age: 38 Year
  Sex: Female
  Weight: 58 kg

DRUGS (5)
  1. BETASERON [Suspect]
     Indication: MULTIPLE SCLEROSIS
     Dosage: 250 UG, EVERY 2D, SUBCUTANEOUS
     Route: 058
     Dates: start: 20011201, end: 20051017
  2. TRANSILANE [Concomitant]
  3. MOVICOL (SODIUM BICARBONATE, MACROGOL) [Concomitant]
  4. LIORESAL [Concomitant]
  5. CLONAZEPAM [Concomitant]

REACTIONS (7)
  - ABDOMINAL MASS [None]
  - ABDOMINAL PAIN [None]
  - FAT NECROSIS [None]
  - INAPPROPRIATE SCHEDULE OF DRUG ADMINISTRATION [None]
  - INCORRECT DOSE ADMINISTERED [None]
  - INFLAMMATION [None]
  - MUSCLE NECROSIS [None]
